FAERS Safety Report 18686865 (Version 2)
Quarter: 2021Q1

REPORT INFORMATION
  Report Type: Spontaneous
  Country: US (occurrence: US)
  Receive Date: 20201230
  Receipt Date: 20210113
  Transmission Date: 20210419
  Serious: Yes (Hospitalization, Other)
  Sender: FDA-Public Use
  Company Number: US-BRISTOL-MYERS SQUIBB COMPANY-BMS-2020-110587

PATIENT
  Age: 69 Year
  Sex: Male

DRUGS (2)
  1. COUMADIN [Suspect]
     Active Substance: WARFARIN SODIUM
     Indication: ATRIAL FIBRILLATION
     Dosage: UNK
     Route: 065
  2. AGALSIDASE BETA [Concomitant]
     Active Substance: AGALSIDASE BETA
     Indication: FABRY^S DISEASE
     Dosage: BI?WEEKLY INFUSION
     Route: 065

REACTIONS (2)
  - Haematochezia [Recovered/Resolved]
  - Haemoglobin decreased [Unknown]
